FAERS Safety Report 21896456 (Version 13)
Quarter: 2023Q4

REPORT INFORMATION
  Report Type: Report from Study
  Country: CN (occurrence: None)
  Receive Date: 20230123
  Receipt Date: 20231018
  Transmission Date: 20240109
  Serious: Yes (Hospitalization)
  Sender: FDA-Public Use
  Company Number: CN-ROCHE-3265421

PATIENT
  Age: 35 Year
  Sex: Female
  Weight: 55.5 kg

DRUGS (27)
  1. OBINUTUZUMAB [Suspect]
     Active Substance: OBINUTUZUMAB
     Indication: Lupus nephritis
     Dosage: THE MOST RECENT DOSE OF STUDY DRUG PRIOR TO AE/SAE RECEIVED FROM 08/DEC/2022 10:33 AM TO 08/DEC/2022
     Route: 042
     Dates: start: 20221124
  2. MYCOPHENOLATE MOFETIL [Suspect]
     Active Substance: MYCOPHENOLATE MOFETIL
     Indication: Lupus nephritis
     Dosage: ON 27/DEC/2022 LAST STUDY DRUG ADMIN PRIOR AE WAS 1500 MG. ON 14/JAN/2023 LAST STUDY DRUG ADMIN PRIO
     Route: 048
     Dates: start: 20221124
  3. PREDNISONE [Suspect]
     Active Substance: PREDNISONE
     Indication: Lupus nephritis
     Route: 048
     Dates: start: 20221125, end: 20221207
  4. PREDNISONE [Suspect]
     Active Substance: PREDNISONE
     Route: 048
     Dates: start: 20221209, end: 20230104
  5. PREDNISONE [Suspect]
     Active Substance: PREDNISONE
     Route: 048
     Dates: start: 20230105, end: 20230113
  6. PREDNISONE [Suspect]
     Active Substance: PREDNISONE
     Route: 048
     Dates: start: 20230120, end: 20230201
  7. PREDNISONE [Suspect]
     Active Substance: PREDNISONE
     Route: 048
     Dates: start: 20230114, end: 20230114
  8. PREDNISONE [Suspect]
     Active Substance: PREDNISONE
     Route: 048
     Dates: start: 20230115, end: 20230119
  9. METHYLPREDNISOLONE [Suspect]
     Active Substance: METHYLPREDNISOLONE
     Indication: Lupus nephritis
     Dosage: TABLET
     Route: 042
     Dates: start: 20221208, end: 20221208
  10. ALFACALCIDOL [Concomitant]
     Active Substance: ALFACALCIDOL
     Indication: Mineral supplementation
     Dosage: 0.25 UG
     Route: 048
     Dates: start: 20221024, end: 202212
  11. FERROUS SUCCINATE [Concomitant]
     Active Substance: FERROUS SUCCINATE
     Indication: Anaemia
     Route: 048
     Dates: start: 20221024, end: 202212
  12. FERROUS SUCCINATE [Concomitant]
     Active Substance: FERROUS SUCCINATE
     Route: 048
     Dates: start: 20221221, end: 20230112
  13. ROXADUSTAT [Concomitant]
     Active Substance: ROXADUSTAT
     Indication: Anaemia
     Route: 048
     Dates: start: 20221025, end: 202212
  14. PANTOPRAZOLE [Concomitant]
     Active Substance: PANTOPRAZOLE
     Route: 048
     Dates: start: 20221126, end: 202301
  15. SULFAMETHOXAZOLE [Concomitant]
     Active Substance: SULFAMETHOXAZOLE
     Route: 048
     Dates: start: 20221107
  16. SULFAMETHOXAZOLE [Concomitant]
     Active Substance: SULFAMETHOXAZOLE
     Dosage: MEDICATION INDICATION INFECTION PREVENTION
     Route: 048
     Dates: start: 20230120
  17. IRBESARTAN [Concomitant]
     Active Substance: IRBESARTAN
     Indication: Hypertension
     Route: 048
     Dates: start: 20221107
  18. IRBESARTAN [Concomitant]
     Active Substance: IRBESARTAN
     Route: 048
     Dates: start: 20230120
  19. CALCIUM CARBONATE\CHOLECALCIFEROL [Concomitant]
     Active Substance: CALCIUM CARBONATE\CHOLECALCIFEROL
     Indication: Mineral supplementation
     Route: 048
     Dates: start: 20220114, end: 20230114
  20. ACETAMINOPHEN [Concomitant]
     Active Substance: ACETAMINOPHEN
     Route: 048
     Dates: start: 20221208, end: 20221208
  21. DIPHENHYDRAMINE [Concomitant]
     Active Substance: DIPHENHYDRAMINE
     Route: 048
     Dates: start: 20221208, end: 20221208
  22. NADROPARIN CALCIUM [Concomitant]
     Active Substance: NADROPARIN CALCIUM
     Indication: Anticoagulant therapy
     Route: 058
     Dates: start: 20230114, end: 20230118
  23. CALCITRIOL [Concomitant]
     Active Substance: CALCITRIOL
     Dosage: 0.25 UG, MEDICATION ONGOING YES, MEDICATION INDICATION CALCIUM SUPPLEMENT
     Route: 048
     Dates: start: 20230120
  24. HYDROXYCHLOROQUINE SULFATE [Concomitant]
     Active Substance: HYDROXYCHLOROQUINE SULFATE
     Indication: Lupus nephritis
     Route: 048
     Dates: start: 20230120
  25. HYDROXYCHLOROQUINE SULFATE [Concomitant]
     Active Substance: HYDROXYCHLOROQUINE SULFATE
     Route: 048
     Dates: start: 20230114, end: 20230114
  26. HYDROXYCHLOROQUINE SULFATE [Concomitant]
     Active Substance: HYDROXYCHLOROQUINE SULFATE
     Route: 048
     Dates: start: 20221024, end: 20230113
  27. RIVAROXABAN [Concomitant]
     Active Substance: RIVAROXABAN
     Dosage: MEDICATION INDICATION ANTICOAGULANT THERAPY
     Route: 048
     Dates: start: 20230120

REACTIONS (1)
  - COVID-19 pneumonia [Recovered/Resolved]

NARRATIVE: CASE EVENT DATE: 20221227
